FAERS Safety Report 23693012 (Version 2)
Quarter: 2024Q2

REPORT INFORMATION
  Report Type: Spontaneous
  Country: US (occurrence: US)
  Receive Date: 20240401
  Receipt Date: 20240410
  Transmission Date: 20240716
  Serious: Yes (Death, Other)
  Sender: FDA-Public Use
  Company Number: US-TAKEDA-2024TUS030190

PATIENT
  Age: 29 Year
  Sex: Male

DRUGS (1)
  1. COLCHICINE [Suspect]
     Active Substance: COLCHICINE
     Indication: Myocarditis
     Dosage: UNK
     Route: 065

REACTIONS (10)
  - Cardiogenic shock [Fatal]
  - Acute respiratory distress syndrome [Unknown]
  - Right ventricular failure [Unknown]
  - Renal failure [Unknown]
  - Hepatic failure [Unknown]
  - Off label use [Unknown]
  - Intentional overdose [Unknown]
  - Ejection fraction [Unknown]
  - Metabolic acidosis [Unknown]
  - Respiratory acidosis [Unknown]
